FAERS Safety Report 19084300 (Version 1)
Quarter: 2021Q2

REPORT INFORMATION
  Report Type: Spontaneous
  Country: TR (occurrence: TR)
  Receive Date: 20210401
  Receipt Date: 20210401
  Transmission Date: 20210717
  Serious: Yes (Death)
  Sender: FDA-Public Use
  Company Number: TR-ABBVIE-21K-161-3839918-00

PATIENT
  Age: 76 Year
  Sex: Male

DRUGS (3)
  1. AZACITIDINE. [Concomitant]
     Active Substance: AZACITIDINE
     Indication: ACUTE MYELOID LEUKAEMIA
     Dosage: 7 DAYS IN 28 DAYS
     Dates: start: 201911
  2. VENETOCLAX. [Suspect]
     Active Substance: VENETOCLAX
     Indication: ACUTE MYELOID LEUKAEMIA
     Route: 048
     Dates: start: 201911
  3. VENETOCLAX. [Suspect]
     Active Substance: VENETOCLAX
     Route: 048

REACTIONS (10)
  - Febrile neutropenia [Fatal]
  - Fungal infection [Unknown]
  - Dyspnoea [Unknown]
  - Cough [Unknown]
  - Depressed level of consciousness [Fatal]
  - Pyrexia [Fatal]
  - Acute myeloid leukaemia recurrent [Fatal]
  - Off label use [Unknown]
  - Blood disorder [Unknown]
  - General physical health deterioration [Fatal]

NARRATIVE: CASE EVENT DATE: 202001
